FAERS Safety Report 13638513 (Version 1)
Quarter: 2017Q2

REPORT INFORMATION
  Report Type: Report from Study
  Country: IT (occurrence: IT)
  Receive Date: 20170609
  Receipt Date: 20170609
  Transmission Date: 20170830
  Serious: Yes (Hospitalization)
  Sender: FDA-Public Use
  Company Number: IT-MYLANLABS-2017M1034182

PATIENT

DRUGS (4)
  1. EUTIROX [Concomitant]
     Active Substance: LEVOTHYROXINE SODIUM
     Indication: HYPOTHYROIDISM
     Dosage: UNK
  2. TRITTICO [Suspect]
     Active Substance: TRAZODONE HYDROCHLORIDE
     Indication: COGNITIVE DISORDER
     Dosage: 25 GTT, QD
     Route: 048
     Dates: start: 20170215
  3. QUENTIAX [Suspect]
     Active Substance: QUETIAPINE FUMARATE
     Indication: COGNITIVE DISORDER
     Dosage: 1.5 DF, QD
     Route: 048
     Dates: start: 20170215
  4. TRIAZOLAM. [Suspect]
     Active Substance: TRIAZOLAM
     Indication: COGNITIVE DISORDER
     Dosage: 2 DF, QD
     Route: 048
     Dates: start: 20170215

REACTIONS (2)
  - Confusional state [Unknown]
  - Sopor [Unknown]

NARRATIVE: CASE EVENT DATE: 20170218
